FAERS Safety Report 18339042 (Version 1)
Quarter: 2020Q4

REPORT INFORMATION
  Report Type: Other
  Country: CA (occurrence: CA)
  Receive Date: 20201002
  Receipt Date: 20201002
  Transmission Date: 20210113
  Serious: Yes (Other)
  Sender: FDA-Public Use
  Company Number: CA-APOTEX-2020AP018704

PATIENT
  Sex: Male

DRUGS (1)
  1. APO-ATORVASTATIN [Suspect]
     Active Substance: ATORVASTATIN
     Indication: PRODUCT USED FOR UNKNOWN INDICATION
     Dosage: UNK
     Route: 065

REACTIONS (10)
  - Muscle twitching [Unknown]
  - Weight decreased [Unknown]
  - Dyspnoea [Unknown]
  - Insomnia [Unknown]
  - Muscular weakness [Unknown]
  - Dysphonia [Unknown]
  - Quality of life decreased [Unknown]
  - Anxiety [Unknown]
  - Muscle spasms [Unknown]
  - Depression [Unknown]
